FAERS Safety Report 4359883-6 (Version None)
Quarter: 2004Q2

REPORT INFORMATION
  Report Type: 
  Country: None (occurrence: None)
  Receive Date: 20040517
  Receipt Date: 20040517
  Transmission Date: 20050107
  Serious: No
  Sender: FDA-Public Use
  Company Number: None

PATIENT
  Age: 68 Year
  Sex: Female
  Weight: 68.0396 kg

DRUGS (1)
  1. NATRECOR [Suspect]
     Indication: CARDIAC FAILURE CONGESTIVE
     Dosage: 0.01 MG/KG/MIN
     Dates: start: 20040515, end: 20040516

REACTIONS (5)
  - BLISTER [None]
  - INFUSION SITE PAIN [None]
  - INFUSION SITE REACTION [None]
  - OEDEMA PERIPHERAL [None]
  - SKIN DISCOLOURATION [None]
